FAERS Safety Report 13973653 (Version 4)
Quarter: 2018Q2

REPORT INFORMATION
  Report Type: Spontaneous
  Country: US (occurrence: US)
  Receive Date: 20170915
  Receipt Date: 20180418
  Transmission Date: 20180711
  Serious: Yes (Life-Threatening, Disabling, Other)
  Sender: FDA-Public Use
  Company Number: PHEH2017US028597

PATIENT
  Sex: Female

DRUGS (3)
  1. TRILEPTAL [Suspect]
     Active Substance: OXCARBAZEPINE
     Indication: TOXICITY TO VARIOUS AGENTS
     Dosage: 75 MG, QD
     Route: 048
  2. ZYPREXA [Suspect]
     Active Substance: OLANZAPINE
     Indication: PRODUCT USED FOR UNKNOWN INDICATION
     Dosage: UNK
     Route: 065
  3. TRILEPTAL [Suspect]
     Active Substance: OXCARBAZEPINE
     Dosage: 300 MG, BID
     Route: 048
     Dates: start: 20170518

REACTIONS (11)
  - Night sweats [Unknown]
  - Tremor [Unknown]
  - Disturbance in attention [Unknown]
  - Drug intolerance [Unknown]
  - Memory impairment [Unknown]
  - Hypotension [Unknown]
  - Fall [Unknown]
  - Hypersensitivity [Unknown]
  - Drug prescribing error [Recovered/Resolved with Sequelae]
  - Overdose [Recovered/Resolved with Sequelae]
  - Product use in unapproved indication [Unknown]
